FAERS Safety Report 15479830 (Version 7)
Quarter: 2020Q3

REPORT INFORMATION
  Report Type: Report from Study
  Country: US (occurrence: US)
  Receive Date: 20181009
  Receipt Date: 20200824
  Transmission Date: 20201102
  Serious: Yes (Hospitalization, Other)
  Sender: FDA-Public Use
  Company Number: US-ACTELION-A-US2018-179806

PATIENT
  Sex: Female
  Weight: 72.56 kg

DRUGS (4)
  1. UPTRAVI [Suspect]
     Active Substance: SELEXIPAG
     Dosage: 1600 MCG, BID
     Route: 048
  2. SILDENAFIL. [Concomitant]
     Active Substance: SILDENAFIL
  3. UPTRAVI [Suspect]
     Active Substance: SELEXIPAG
     Indication: PULMONARY ARTERIAL HYPERTENSION
     Dosage: 800 MCG, BID
     Route: 048
  4. AMLODIPINE [Concomitant]
     Active Substance: AMLODIPINE BESYLATE

REACTIONS (16)
  - Ammonia increased [Unknown]
  - Pulmonary arterial pressure increased [Unknown]
  - Product dose omission issue [Unknown]
  - Hepatic cirrhosis [Unknown]
  - Hospitalisation [Unknown]
  - Pneumonia [Unknown]
  - Hepatic encephalopathy [Unknown]
  - Chronic hepatic failure [Unknown]
  - End stage renal disease [Unknown]
  - Pulmonary arterial hypertension [Unknown]
  - Gastrointestinal disorder [Unknown]
  - Dyspnoea [Unknown]
  - Off label use [Unknown]
  - Chest pain [Unknown]
  - Rib fracture [Unknown]
  - Confusional state [Unknown]
